FAERS Safety Report 4601699-7 (Version None)
Quarter: 2005Q1

REPORT INFORMATION
  Report Type: 
  Country: None (occurrence: None)
  Receive Date: 20050131
  Receipt Date: 20040928
  Transmission Date: 20050727
  Serious: Yes (Other)
  Sender: FDA-Public Use
  Company Number: 200416876US

PATIENT
  Age: 25 Year
  Sex: Female

DRUGS (5)
  1. TELITHROMYCIN (KETEK) TABLET [Suspect]
     Indication: SINUSITIS
     Dosage: 800 MG QD PO
     Route: 048
     Dates: start: 20040908, end: 20040909
  2. TYLENOL [Concomitant]
  3. ACETAMINOPHEN [Concomitant]
  4. CHLORPHENIRAMINE MALEATE [Concomitant]
  5. PSEUDOEPHEDRINE HYDROCHLORIDE (SINUS TABLETS) [Concomitant]

REACTIONS (5)
  - BODY TEMPERATURE INCREASED [None]
  - DIZZINESS [None]
  - HYPERTENSION [None]
  - NAUSEA [None]
  - VISION BLURRED [None]
